FAERS Safety Report 4610353-7 (Version None)
Quarter: 2005Q1

REPORT INFORMATION
  Report Type: 
  Country: None (occurrence: None)
  Receive Date: 20050314
  Receipt Date: 20050223
  Transmission Date: 20050727
  Serious: Yes (Death)
  Sender: FDA-Public Use
  Company Number: 10400

PATIENT
  Age: 65 Year
  Sex: Female

DRUGS (2)
  1. CYTARABINE [Suspect]
     Indication: ACUTE MYELOID LEUKAEMIA
     Dosage: 1 G/M2 DAILY IV
     Route: 042
  2. CLOFARABINE [Suspect]
     Indication: ACUTE MYELOID LEUKAEMIA
     Dosage: 15 MG/M2 OTH IV
     Route: 042

REACTIONS (4)
  - BACTERIAL SEPSIS [None]
  - BONE MARROW DEPRESSION [None]
  - MULTI-ORGAN FAILURE [None]
  - SEPTIC SHOCK [None]
